FAERS Safety Report 4693147-6 (Version None)
Quarter: 2005Q2

REPORT INFORMATION
  Report Type: 
  Country: None (occurrence: None)
  Receive Date: 20050614
  Receipt Date: 20050601
  Transmission Date: 20051028
  Serious: Yes (Death)
  Sender: FDA-Public Use
  Company Number: 200510239BBE

PATIENT
  Age: 23 Year
  Sex: Male

DRUGS (1)
  1. KOATE [Suspect]
     Dosage: 500 IU, TOTAL DAILY, INTRAVENOUS
     Route: 042

REACTIONS (2)
  - ANAPHYLACTIC SHOCK [None]
  - RASH [None]
